FAERS Safety Report 25422356 (Version 1)
Quarter: 2025Q2

REPORT INFORMATION
  Report Type: Spontaneous
  Country: US (occurrence: US)
  Receive Date: 20250611
  Receipt Date: 20250611
  Transmission Date: 20250716
  Serious: No
  Sender: TAKEDA
  Company Number: US-TAKEDA-2025TUS053916

PATIENT
  Sex: Male
  Weight: 111 kg

DRUGS (2)
  1. GAMMAGARD LIQUID [Suspect]
     Active Substance: HUMAN IMMUNOGLOBULIN G
     Indication: Hypogammaglobulinaemia
     Dosage: 50000 MICROGRAM, Q7WEEKS
     Dates: start: 20240521
  2. GAMMAGARD LIQUID [Suspect]
     Active Substance: HUMAN IMMUNOGLOBULIN G
     Dosage: 400 MILLIGRAM/KILOGRAM, Q7WEEKS

REACTIONS (4)
  - Chills [Unknown]
  - Arthralgia [Unknown]
  - Hypertension [Unknown]
  - Urticaria [Unknown]
